FAERS Safety Report 18895267 (Version 1)
Quarter: 2021Q1

REPORT INFORMATION
  Report Type: Report from Study
  Country: US (occurrence: US)
  Receive Date: 20210215
  Receipt Date: 20210215
  Transmission Date: 20210420
  Serious: Yes (Other)
  Sender: FDA-Public Use
  Company Number: US-TAKEDA-US202014206

PATIENT
  Sex: Female

DRUGS (1)
  1. HUMAN NORMAL IMMUNOGLOBULIN; LIQUID [Suspect]
     Active Substance: HUMAN IMMUNOGLOBULIN G
     Indication: SELECTIVE IGG SUBCLASS DEFICIENCY
     Route: 042

REACTIONS (7)
  - Infusion related reaction [Unknown]
  - Chills [Unknown]
  - Epistaxis [Unknown]
  - Breast cancer recurrent [Unknown]
  - Pain [Unknown]
  - Lymphoedema [Unknown]
  - Inappropriate schedule of product administration [Unknown]
